FAERS Safety Report 10262135 (Version 1)
Quarter: 2014Q2

REPORT INFORMATION
  Report Type: Spontaneous
  Country: US (occurrence: US)
  Receive Date: 20140626
  Receipt Date: 20140626
  Transmission Date: 20141212
  Serious: Yes (Other)
  Sender: FDA-Public Use
  Company Number: US-GLAXOSMITHKLINE-A1078063A

PATIENT
  Sex: Male

DRUGS (9)
  1. COREG [Suspect]
     Indication: ARTERIOSCLEROSIS CORONARY ARTERY
     Dosage: 12.5MG TWICE PER DAY
     Route: 048
     Dates: start: 2011
  2. LOVAZA [Suspect]
     Indication: ARTERIOSCLEROSIS CORONARY ARTERY
     Dosage: 2CAP PER DAY
     Route: 048
     Dates: start: 2011
  3. SEROQUEL [Concomitant]
  4. NAMENDA [Concomitant]
  5. ALBUTEROL INHALER [Concomitant]
  6. ALLOPURINOL [Concomitant]
  7. ROBITUSSIN [Concomitant]
  8. AFRIN NASAL SPRAY [Concomitant]
  9. PROTONIX [Concomitant]

REACTIONS (3)
  - Dementia [Unknown]
  - Memory impairment [Unknown]
  - Confusional state [Unknown]
